FAERS Safety Report 15507587 (Version 2)
Quarter: 2018Q4

REPORT INFORMATION
  Report Type: Spontaneous
  Country: US (occurrence: US)
  Receive Date: 20181016
  Receipt Date: 20181016
  Transmission Date: 20190205
  Serious: Yes (Death, Hospitalization, Other)
  Sender: FDA-Public Use
  Company Number: US-CELGENEUS-USA-20181004005

PATIENT
  Age: 76 Year
  Sex: Male

DRUGS (6)
  1. AZACITIDINE. [Suspect]
     Active Substance: AZACITIDINE
     Indication: ACUTE MYELOID LEUKAEMIA
     Dosage: 75 MILLIGRAM/SQ. METER
     Route: 065
     Dates: start: 20180806, end: 20180814
  2. MEROPENEM. [Concomitant]
     Active Substance: MEROPENEM
     Indication: SYSTEMIC CANDIDA
     Route: 065
     Dates: start: 20180913
  3. NIVOLUMAB [Suspect]
     Active Substance: NIVOLUMAB
     Indication: ACUTE MYELOID LEUKAEMIA
     Dosage: 3 MILLIGRAM/KILOGRAM
     Route: 065
     Dates: start: 20180806, end: 20180806
  4. VANCOMYCIN [Concomitant]
     Active Substance: VANCOMYCIN
     Indication: HYPOTENSION
     Route: 065
  5. MICAFUNGIN. [Concomitant]
     Active Substance: MICAFUNGIN SODIUM
     Indication: SYSTEMIC CANDIDA
     Route: 065
     Dates: start: 20180913
  6. NOREPINEPHRINE. [Concomitant]
     Active Substance: NOREPINEPHRINE
     Indication: HYPOTENSION
     Route: 065

REACTIONS (9)
  - Supraventricular tachycardia [Unknown]
  - Febrile neutropenia [Unknown]
  - Acidosis [Unknown]
  - Acute kidney injury [Unknown]
  - Respiratory failure [Fatal]
  - Lower gastrointestinal haemorrhage [Unknown]
  - Sepsis [Unknown]
  - Pneumonia [Unknown]
  - Anaemia [Unknown]

NARRATIVE: CASE EVENT DATE: 20180806
